FAERS Safety Report 5154894-5 (Version None)
Quarter: 2006Q4

REPORT INFORMATION
  Report Type: 
  Country: None (occurrence: None)
  Receive Date: 20061120
  Receipt Date: 20061120
  Transmission Date: 20070319
  Serious: Yes (Hospitalization)
  Sender: FDA-Public Use
  Company Number: None

PATIENT
  Age: 34 Year
  Sex: Female
  Weight: 97.5234 kg

DRUGS (1)
  1. EQUATE PAIN RELIEVER    500 MG    PERRIGO [Suspect]
     Indication: PAIN IN EXTREMITY
     Dosage: 1000 MG    1 OR 2 TIMES A DAY   PO
     Route: 048
     Dates: start: 20060901, end: 20061101

REACTIONS (2)
  - ABDOMINAL PAIN UPPER [None]
  - PHARMACEUTICAL PRODUCT COMPLAINT [None]
